FAERS Safety Report 8454326-5 (Version None)
Quarter: 2012Q2

REPORT INFORMATION
  Report Type: 
  Country: None (occurrence: None)
  Receive Date: 20120621
  Receipt Date: 20120302
  Transmission Date: 20120825
  Serious: No
  Sender: FDA-Public Use
  Company Number: US-ALLERGAN-1203090US

PATIENT
  Age: 65 Year
  Sex: Female

DRUGS (1)
  1. LUMIGAN [Suspect]
     Indication: GLAUCOMA
     Dosage: 2 GTT, QHS
     Route: 047
     Dates: start: 20120101

REACTIONS (5)
  - ERYTHEMA [None]
  - GROWTH OF EYELASHES [None]
  - PRURITUS [None]
  - RHINORRHOEA [None]
  - EYELASH THICKENING [None]
